FAERS Safety Report 4270744-3 (Version None)
Quarter: 2004Q1

REPORT INFORMATION
  Report Type: 
  Country: None (occurrence: None)
  Receive Date: 20040113
  Receipt Date: 20031229
  Transmission Date: 20041129
  Serious: Yes (Hospitalization)
  Sender: FDA-Public Use
  Company Number: S03-USA-05302-01

PATIENT
  Age: 65 Year
  Sex: Female

DRUGS (6)
  1. LEXAPRO [Suspect]
     Indication: DEPRESSION
     Dosage: 10 MG QD PO
     Route: 048
     Dates: start: 20031124, end: 20031218
  2. BIAXIN [Suspect]
     Indication: MYCOBACTERIAL INFECTION
     Dates: start: 20031124
  3. REGLAN (METOCLOMPRAMIDE) [Concomitant]
  4. CIPRO [Concomitant]
  5. COLCHICHINE (COLCHICINE) [Concomitant]
  6. AMIKACIN [Concomitant]

REACTIONS (5)
  - BLOOD POTASSIUM DECREASED [None]
  - DIARRHOEA [None]
  - ELECTROCARDIOGRAM QT PROLONGED [None]
  - INAPPROPRIATE ANTIDIURETIC HORMONE SECRETION [None]
  - VOMITING [None]
